FAERS Safety Report 18387880 (Version 1)
Quarter: 2020Q4

REPORT INFORMATION
  Report Type: Spontaneous
  Country: JP (occurrence: JP)
  Receive Date: 20201015
  Receipt Date: 20201015
  Transmission Date: 20210114
  Serious: Yes (Other)
  Sender: FDA-Public Use
  Company Number: JP-JNJFOC-20201020825

PATIENT
  Age: 70 Year
  Sex: Male

DRUGS (15)
  1. TENELIA [Suspect]
     Active Substance: TENELIGLIPTIN
     Indication: PRODUCT USED FOR UNKNOWN INDICATION
     Route: 048
  2. SEIBULE [Concomitant]
     Active Substance: MIGLITOL
     Route: 048
  3. VOGLIBOSE [Concomitant]
     Active Substance: VOGLIBOSE
     Route: 065
  4. SENNARIDE [Concomitant]
     Active Substance: SENNOSIDES A AND B
     Route: 065
  5. CANAGLIFLOZIN [Suspect]
     Active Substance: CANAGLIFLOZIN
     Indication: DIABETES MELLITUS
     Dosage: 100 MILLIGRAM, QD
     Route: 048
  6. METGLUCO [Concomitant]
     Active Substance: METFORMIN HYDROCHLORIDE
     Route: 048
  7. ACTOS [Concomitant]
     Active Substance: PIOGLITAZONE HYDROCHLORIDE
     Route: 048
  8. ANAGLIPTIN [Concomitant]
     Active Substance: ANAGLIPTIN
     Route: 048
  9. GLIMICRON [Concomitant]
     Active Substance: GLICLAZIDE
     Route: 048
  10. LIPITOR [Concomitant]
     Active Substance: ATORVASTATIN CALCIUM
     Route: 065
  11. METHYCOBAL [Concomitant]
     Active Substance: METHYLCOBALAMIN
     Dosage: UNK
     Route: 048
     Dates: start: 202006
  12. AMARYL [Concomitant]
     Active Substance: GLIMEPIRIDE
     Route: 048
  13. PURSENNID                          /00571902/ [Concomitant]
     Active Substance: SENNOSIDES A AND B
     Route: 048
  14. INISYNC [Concomitant]
     Active Substance: ALOGLIPTIN BENZOATE\METFORMIN HYDROCHLORIDE
     Route: 048
  15. TRAZENTA [Concomitant]
     Active Substance: LINAGLIPTIN
     Route: 048

REACTIONS (12)
  - No adverse event [Unknown]
  - Gait disturbance [Unknown]
  - Malaise [Unknown]
  - Therapeutic product effect incomplete [Unknown]
  - Pain in extremity [Unknown]
  - Constipation [Unknown]
  - Movement disorder [Unknown]
  - Birth mark [Unknown]
  - Urticaria [Unknown]
  - Functional gastrointestinal disorder [Unknown]
  - Intentional product misuse [Unknown]
  - Pruritus [Unknown]

NARRATIVE: CASE EVENT DATE: 202006
